FAERS Safety Report 25468479 (Version 1)
Quarter: 2025Q2

REPORT INFORMATION
  Report Type: Spontaneous
  Country: BR (occurrence: BR)
  Receive Date: 20250623
  Receipt Date: 20250623
  Transmission Date: 20250717
  Serious: Yes (Hospitalization, Other)
  Sender: GLAXOSMITHKLINE
  Company Number: BR-GSK-BR2025GSK075233

PATIENT
  Age: 61 Year
  Sex: Male

DRUGS (2)
  1. PROPAFENONE [Suspect]
     Active Substance: PROPAFENONE
     Indication: Atrial fibrillation
     Dosage: 300 MG, BID
  2. PROPAFENONE [Suspect]
     Active Substance: PROPAFENONE
     Dosage: 900 MG, 1D

REACTIONS (3)
  - Tachycardia [Recovered/Resolved]
  - Electrocardiogram abnormal [Recovered/Resolved]
  - Poisoning [Recovered/Resolved]
